FAERS Safety Report 4962800-9 (Version None)
Quarter: 2006Q2

REPORT INFORMATION
  Report Type: 
  Country: None (occurrence: None)
  Receive Date: 20060404
  Receipt Date: 20050414
  Transmission Date: 20061013
  Serious: Yes (Hospitalization)
  Sender: FDA-Public Use
  Company Number: US-MERCK-0504USA02708

PATIENT
  Age: 64 Year
  Sex: Male
  Weight: 114 kg

DRUGS (1)
  1. VIOXX [Suspect]
     Indication: ARTHRITIS
     Route: 048
     Dates: end: 20041001

REACTIONS (4)
  - CORONARY ARTERY DISEASE [None]
  - INFECTION [None]
  - JOINT INJURY [None]
  - MYOCARDIAL INFARCTION [None]
